FAERS Safety Report 6700711-9 (Version None)
Quarter: 2010Q2

REPORT INFORMATION
  Report Type: 
  Country: None (occurrence: None)
  Receive Date: 20100426
  Receipt Date: 20100413
  Transmission Date: 20101027
  Serious: Yes (Hospitalization)
  Sender: FDA-Public Use
  Company Number: UTC-001025

PATIENT
  Sex: Male
  Weight: 80.8 kg

DRUGS (11)
  1. REMODULIN [Suspect]
     Dosage: 768 UL (32 UL, 1 IN 1 HR)
  2. AVODART [Concomitant]
  3. TAMSULOSIN HCL [Concomitant]
  4. PANTOLIC (PANTOPRAZOLE) [Concomitant]
  5. SPIRONO (SPIRONOLACTONE) [Concomitant]
  6. SEDACORON (AMIODARONE HYDROCHLORIDE) [Concomitant]
  7. AQUAPHORIL (XIPAMIDE) [Concomitant]
  8. LASIX [Concomitant]
  9. MARCUMAR [Concomitant]
  10. ALLOPURINOL [Concomitant]
  11. NERISONA SALBE (DIFLUCORTOLONE VALERATE) [Concomitant]

REACTIONS (2)
  - CARDIAC FAILURE [None]
  - DERMATITIS EXFOLIATIVE [None]
